FAERS Safety Report 25485045 (Version 1)
Quarter: 2025Q2

REPORT INFORMATION
  Report Type: Spontaneous
  Country: US (occurrence: US)
  Receive Date: 20250626
  Receipt Date: 20250626
  Transmission Date: 20250716
  Serious: Yes (Hospitalization, Other)
  Sender: RANBAXY
  Company Number: US-SUN PHARMACEUTICAL INDUSTRIES LTD-2025R1-513944

PATIENT

DRUGS (5)
  1. BUPROPION [Suspect]
     Active Substance: BUPROPION
     Indication: Depression
     Dosage: 300 MILLIGRAM, DAILY
     Route: 064
  2. FLUOXETINE [Suspect]
     Active Substance: FLUOXETINE HYDROCHLORIDE
     Indication: Depressive symptom
     Dosage: 40 MILLIGRAM, DAILY
     Route: 064
  3. LITHIUM [Suspect]
     Active Substance: LITHIUM
     Indication: Depression
     Dosage: 750 MILLIGRAM, DAILY
     Route: 064
  4. PRAZOSIN [Suspect]
     Active Substance: PRAZOSIN
     Indication: Depression
     Dosage: 5 MILLIGRAM, DAILY
     Route: 064
  5. PRAZOSIN [Suspect]
     Active Substance: PRAZOSIN
     Indication: Nightmare

REACTIONS (2)
  - Foetal exposure during pregnancy [Unknown]
  - Hypoglycaemia [Unknown]
